FAERS Safety Report 19505238 (Version 2)
Quarter: 2024Q2

REPORT INFORMATION
  Report Type: Report from Study
  Country: JP (occurrence: JP)
  Receive Date: 20210707
  Receipt Date: 20240403
  Transmission Date: 20240716
  Serious: Yes (Other)
  Sender: FDA-Public Use
  Company Number: JP-ABBVIE-19K-087-3206942-00

PATIENT
  Age: 78 Year
  Sex: Female
  Weight: 40 kg

DRUGS (14)
  1. CARBIDOPA\LEVODOPA [Suspect]
     Active Substance: CARBIDOPA\LEVODOPA
     Indication: Parkinson^s disease
     Dosage: MD : 11 ML?CD : 3.2 ML/HR ? 16 HRS?ED : 1 ML/UNIT ? 1 TIMES
     Route: 050
     Dates: start: 20190924, end: 20190928
  2. CARBIDOPA\LEVODOPA [Suspect]
     Active Substance: CARBIDOPA\LEVODOPA
     Dosage: MD : 11 ML?CD : 3.4 ML/HR ? 16 HRS?ED : 1 ML/UNIT ? 1 TIMES
     Route: 050
     Dates: start: 20190929, end: 20190930
  3. CARBIDOPA\LEVODOPA [Suspect]
     Active Substance: CARBIDOPA\LEVODOPA
     Dosage: MD : 11 ML?CD : 3.2 ML/HR ? 16 HRS?ED : 1 ML/UNIT ? 1 TIMES
     Route: 050
     Dates: start: 20191001, end: 20191128
  4. CARBIDOPA\LEVODOPA [Suspect]
     Active Substance: CARBIDOPA\LEVODOPA
     Dosage: MD : 11 ML?CD : 3.0 ML/HR ? 16 HRS?ED : 1 ML/UNIT ? 1 TIMES
     Route: 050
     Dates: start: 20191129, end: 20191219
  5. CARBIDOPA\LEVODOPA [Suspect]
     Active Substance: CARBIDOPA\LEVODOPA
     Dosage: MD : 3 ML?CD : 2.8 ML/HR ? 16 HRS?ED : 1 ML/UNIT ? 1 TIMES
     Route: 050
     Dates: start: 20191220, end: 20200901
  6. TIAPRIDE [Concomitant]
     Active Substance: TIAPRIDE
     Indication: Parkinson^s disease
     Route: 048
     Dates: start: 20191022
  7. DIAZEPAM [Concomitant]
     Active Substance: DIAZEPAM
     Indication: Product used for unknown indication
     Route: 048
  8. MAGNESIUM OXIDE [Concomitant]
     Active Substance: MAGNESIUM OXIDE
     Indication: Product used for unknown indication
     Route: 048
  9. TEPRENONE [Concomitant]
     Active Substance: TEPRENONE
     Indication: Prophylaxis
     Route: 048
  10. CLOSTRIDIUM BUTYRICUM SPORES STRAIN M-55 [Concomitant]
     Active Substance: CLOSTRIDIUM BUTYRICUM SPORES STRAIN M-55
     Indication: Prophylaxis
     Route: 048
  11. LEVOTHYROXINE SODIUM [Concomitant]
     Active Substance: LEVOTHYROXINE SODIUM
     Indication: Product used for unknown indication
     Dosage: HYDRATE
     Route: 048
  12. NIFEDIPINE [Concomitant]
     Active Substance: NIFEDIPINE
     Indication: Product used for unknown indication
     Route: 048
  13. MIRABEGRON [Concomitant]
     Active Substance: MIRABEGRON
     Indication: Product used for unknown indication
     Route: 048
  14. SURVECTOR [Concomitant]
     Indication: Product used for unknown indication
     Route: 048

REACTIONS (6)
  - Cataract [Unknown]
  - Aspiration [Unknown]
  - Dyskinesia [Unknown]
  - On and off phenomenon [Unknown]
  - Angle closure glaucoma [Unknown]
  - Wrong technique in device usage process [Unknown]
